FAERS Safety Report 11350204 (Version 1)
Quarter: 2015Q3

REPORT INFORMATION
  Report Type: Spontaneous
  Country: CN (occurrence: CN)
  Receive Date: 20150807
  Receipt Date: 20150807
  Transmission Date: 20151125
  Serious: Yes (Hospitalization)
  Sender: FDA-Public Use
  Company Number: CN-B.I. PHARMACEUTICALS,INC./RIDGEFIELD-2015-BI-41824GD

PATIENT
  Age: 63 Year
  Sex: Female

DRUGS (10)
  1. BENAZEPRIL [Suspect]
     Active Substance: BENAZEPRIL HYDROCHLORIDE
     Indication: HYPERTENSION
     Dosage: 40 MG
     Route: 065
  2. CATAPRESAN [Suspect]
     Active Substance: CLONIDINE
     Indication: HYPERTENSION
     Dosage: 450 MCG
     Route: 065
  3. MICARDIS [Suspect]
     Active Substance: TELMISARTAN
     Indication: HYPERTENSION
     Dosage: 160 MG
     Route: 065
  4. OLMESARTAN [Suspect]
     Active Substance: OLMESARTAN
     Indication: HYPERTENSION
     Dosage: 40 MG
     Route: 065
  5. AROTINOLOL [Suspect]
     Active Substance: AROTINOLOL
     Indication: HYPERTENSION
     Dosage: 20 MG
     Route: 065
  6. ERYTHROPOIETIN [Concomitant]
     Active Substance: ERYTHROPOIETIN
     Indication: ANAEMIA
     Dosage: 1428.5714 U
     Route: 065
  7. NITRENDIPINE [Suspect]
     Active Substance: NITRENDIPINE
     Indication: HYPERTENSION
     Dosage: 60 MG
     Route: 065
  8. TERAZOSIN [Suspect]
     Active Substance: TERAZOSIN\TERAZOSIN HYDROCHLORIDE
     Indication: HYPERTENSION
     Dosage: 4 MG
     Route: 065
  9. LACIDIPINE [Suspect]
     Active Substance: LACIDIPINE
     Indication: HYPERTENSION
     Dosage: 8 MG
     Route: 065
  10. TORASEMIDE [Suspect]
     Active Substance: TORSEMIDE
     Indication: HYPERTENSION
     Dosage: 80 MG
     Route: 065

REACTIONS (1)
  - Drug ineffective [Unknown]
